FAERS Safety Report 18846573 (Version 2)
Quarter: 2021Q4

REPORT INFORMATION
  Report Type: Spontaneous
  Country: US (occurrence: US)
  Receive Date: 20210204
  Receipt Date: 20211229
  Transmission Date: 20220303
  Serious: No
  Sender: FDA-Public Use
  Company Number: US-JNJFOC-20210205392

PATIENT
  Age: 13 Year
  Sex: Male
  Weight: 33.3 kg

DRUGS (1)
  1. DURAGESIC [Suspect]
     Active Substance: FENTANYL
     Indication: Product used for unknown indication
     Route: 062

REACTIONS (3)
  - Hypersensitivity [Unknown]
  - Eye oedema [Unknown]
  - Face oedema [Unknown]
